FAERS Safety Report 25751053 (Version 2)
Quarter: 2025Q4

REPORT INFORMATION
  Report Type: Spontaneous
  Country: EU (occurrence: EU)
  Receive Date: 20250902
  Receipt Date: 20251007
  Transmission Date: 20260118
  Serious: Yes (Other)
  Sender: NOVARTIS
  Company Number: EU-002147023-NVSC2025DE134344

PATIENT
  Age: 80 Year
  Sex: Male

DRUGS (4)
  1. PLUVICTO [Suspect]
     Active Substance: LUTETIUM LU-177 VIPIVOTIDE TETRAXETAN
     Indication: Prostate cancer
     Dosage: UNK, ONCE/SINGLE (IN TOTAL)
     Route: 065
     Dates: start: 20250310, end: 20250310
  2. PLUVICTO [Suspect]
     Active Substance: LUTETIUM LU-177 VIPIVOTIDE TETRAXETAN
     Dosage: UNK, ONCE/SINGLE (IN TOTAL)
     Route: 065
     Dates: start: 20250428, end: 20250428
  3. PLUVICTO [Suspect]
     Active Substance: LUTETIUM LU-177 VIPIVOTIDE TETRAXETAN
     Dosage: UNK, ONCE/SINGLE (IN TOTAL)
     Route: 065
     Dates: start: 20250616, end: 20250616
  4. PLUVICTO [Suspect]
     Active Substance: LUTETIUM LU-177 VIPIVOTIDE TETRAXETAN
     Dosage: UNK, ONCE/SINGLE (IN TOTAL)
     Route: 065
     Dates: start: 20250728, end: 20250728

REACTIONS (3)
  - Malignant neoplasm progression [Unknown]
  - Prostate cancer metastatic [Unknown]
  - General physical health deterioration [Unknown]

NARRATIVE: CASE EVENT DATE: 20250819
